FAERS Safety Report 10419087 (Version 1)
Quarter: 2014Q2

REPORT INFORMATION
  Report Type: Report from Study
  Country: US (occurrence: None)
  Receive Date: 20140627
  Receipt Date: 20140627
  Transmission Date: 20141212
  Serious: No
  Sender: FDA-Public Use
  Company Number: CABO-14004169

PATIENT
  Age: 73 Year
  Sex: Male

DRUGS (18)
  1. COMETRIQ (CABOZANTINIB) CAPSULE [Suspect]
     Indication: PROSTATE CANCER
     Route: 048
     Dates: start: 20140127, end: 20140506
  2. IXEMPRA (IXABEPILONE) [Concomitant]
  3. CARBOPLATIN [Concomitant]
  4. NEULASTA (PEGFILGRASTIM) [Concomitant]
  5. ARANESP (DARBEPOETIN ALFA) [Concomitant]
  6. LIPITOR (ATORVASTIN CALCIUM) [Concomitant]
  7. TOPROL (METOPROLOL SUCCINATE) [Concomitant]
  8. CELEBREX (CELECOXIB) [Concomitant]
  9. PREDNISONE [Concomitant]
  10. ADVAIR (FLUTICASONE PROPIONATE, SALMETEROL XINAFOATE) [Concomitant]
  11. AVODART (DUTASTERIDE) CAPSULES [Concomitant]
  12. XGEVA (DENOSUMAB) [Concomitant]
  13. KLOR CON (POTASSIUM CHLORIDE) [Concomitant]
  14. LEUPRON (LEUPRORELIN) [Concomitant]
  15. FLOMAX (TAMSULOSIN HYDROCHLORIDE) [Concomitant]
  16. ASPIRIN (ACETYLSALICYLIC ACID) [Concomitant]
  17. CALCIUM CITRATE [Concomitant]
  18. VITAMIN D (COLECALCIFEROL) [Concomitant]

REACTIONS (5)
  - Pain in extremity [None]
  - Neuropathy peripheral [None]
  - Lethargy [None]
  - Malignant neoplasm progression [None]
  - Off label use [None]
